FAERS Safety Report 13600132 (Version 1)
Quarter: 2017Q2

REPORT INFORMATION
  Report Type: Spontaneous
  Country: US (occurrence: US)
  Receive Date: 20170531
  Receipt Date: 20170531
  Transmission Date: 20170830
  Serious: Yes (Hospitalization)
  Sender: FDA-Public Use
  Company Number: None

PATIENT
  Age: 29 Year
  Sex: Female
  Weight: 90 kg

DRUGS (2)
  1. IRON SUCROSE [Suspect]
     Active Substance: IRON SUCROSE
     Indication: IRON DEFICIENCY ANAEMIA
     Route: 042
     Dates: start: 20161019, end: 20161019
  2. METHYLPREDNISOLONE. [Suspect]
     Active Substance: METHYLPREDNISOLONE
     Indication: IRON DEFICIENCY ANAEMIA
     Route: 042
     Dates: start: 20161019, end: 20161019

REACTIONS (7)
  - Hypotension [None]
  - Tension headache [None]
  - Myalgia [None]
  - Anaphylactic reaction [None]
  - Chest discomfort [None]
  - Syncope [None]
  - Rash [None]

NARRATIVE: CASE EVENT DATE: 20161019
